FAERS Safety Report 25006030 (Version 1)
Quarter: 2025Q1

REPORT INFORMATION
  Report Type: Spontaneous
  Country: FR (occurrence: FR)
  Receive Date: 20250224
  Receipt Date: 20250224
  Transmission Date: 20250408
  Serious: Yes (Hospitalization)
  Sender: ELI LILLY AND COMPANY
  Company Number: FR-ELI_LILLY_AND_COMPANY-FR202502011875

PATIENT
  Age: 15 Year
  Sex: Female

DRUGS (5)
  1. OLANZAPINE [Suspect]
     Active Substance: OLANZAPINE
     Indication: Decreased appetite
     Dosage: 7.5 MG, DAILY
     Route: 065
     Dates: start: 20241017
  2. OLANZAPINE [Suspect]
     Active Substance: OLANZAPINE
     Indication: Bulimia nervosa
  3. FLUOXETINE HYDROCHLORIDE [Suspect]
     Active Substance: FLUOXETINE HYDROCHLORIDE
     Indication: Decreased appetite
     Dosage: 20 MG, DAILY
     Route: 065
     Dates: start: 20241017
  4. FLUOXETINE HYDROCHLORIDE [Suspect]
     Active Substance: FLUOXETINE HYDROCHLORIDE
     Indication: Bulimia nervosa
     Dosage: 30 MG, DAILY
     Route: 065
     Dates: start: 20241216
  5. MELATONIN [Concomitant]
     Active Substance: MELATONIN
     Indication: Sleep disorder

REACTIONS (3)
  - Venous thrombosis limb [Recovered/Resolved]
  - Ecchymosis [Not Recovered/Not Resolved]
  - Off label use [Unknown]

NARRATIVE: CASE EVENT DATE: 20241017
